FAERS Safety Report 5746357-0 (Version None)
Quarter: 2008Q2

REPORT INFORMATION
  Report Type: 
  Country: None (occurrence: None)
  Receive Date: 20080522
  Receipt Date: 20080509
  Transmission Date: 20081010
  Serious: Yes (Other)
  Sender: FDA-Public Use
  Company Number: PHHY2008BR07657

PATIENT
  Age: 37 Year
  Sex: Female
  Weight: 61 kg

DRUGS (4)
  1. RITALIN LA [Suspect]
     Indication: ATTENTION DEFICIT/HYPERACTIVITY DISORDER
     Dosage: 30 MG IN MORNING
     Route: 048
  2. TRANQUINAL [Concomitant]
     Indication: ANXIETY
     Dosage: 1 TABLET AT NIGHT
  3. LUFTAL [Concomitant]
  4. RITALIN [Suspect]
     Indication: ATTENTION DEFICIT/HYPERACTIVITY DISORDER
     Dosage: 10 MG, 2 TABLETS IN MORNING
     Route: 048
     Dates: start: 20080401

REACTIONS (7)
  - ABNORMAL BEHAVIOUR [None]
  - ANXIETY [None]
  - DEPRESSION [None]
  - DRUG INEFFECTIVE [None]
  - IRRITABILITY [None]
  - PHARYNGEAL OEDEMA [None]
  - SLEEP DISORDER [None]
